FAERS Safety Report 22602581 (Version 1)
Quarter: 2023Q2

REPORT INFORMATION
  Report Type: Other
  Country: PK (occurrence: None)
  Receive Date: 20230614
  Receipt Date: 20230614
  Transmission Date: 20230721
  Serious: Yes (Death)
  Sender: FDA-Public Use
  Company Number: PK-ROCHE-3368288

PATIENT
  Age: 45 Year
  Sex: Female

DRUGS (1)
  1. AVASTIN [Suspect]
     Active Substance: BEVACIZUMAB
     Indication: Ovarian cancer
     Dosage: 6 CYCLES
     Route: 041
     Dates: start: 20221219

REACTIONS (1)
  - Death [Fatal]

NARRATIVE: CASE EVENT DATE: 20230528
